FAERS Safety Report 9333767 (Version 1)
Quarter: 2013Q2

REPORT INFORMATION
  Report Type: Spontaneous
  Country: US (occurrence: US)
  Receive Date: 20130606
  Receipt Date: 20130606
  Transmission Date: 20140414
  Serious: No
  Sender: FDA-Public Use
  Company Number: US-AMGEN-USASP2013000131

PATIENT
  Sex: Female

DRUGS (1)
  1. PROLIA [Suspect]
     Indication: PRODUCT USED FOR UNKNOWN INDICATION
     Dosage: UNK
     Dates: start: 201208

REACTIONS (5)
  - Hyperhidrosis [Unknown]
  - Bronchitis [Unknown]
  - Abdominal pain upper [Recovered/Resolved]
  - Bone pain [Unknown]
  - Upper respiratory tract infection [Unknown]
